FAERS Safety Report 11757447 (Version 1)
Quarter: 2015Q4

REPORT INFORMATION
  Report Type: Spontaneous
  Country: IT (occurrence: IT)
  Receive Date: 20151120
  Receipt Date: 20151120
  Transmission Date: 20160304
  Serious: Yes (Death, Other)
  Sender: FDA-Public Use
  Company Number: IT-WATSON-2015-24367

PATIENT
  Age: 43 Year
  Sex: Male

DRUGS (4)
  1. TRETIN X [Suspect]
     Active Substance: TRETINOIN
     Indication: ACUTE PROMYELOCYTIC LEUKAEMIA
     Dosage: UNK
     Route: 065
  2. DEXAMETHASONE (UNKNOWN) [Suspect]
     Active Substance: DEXAMETHASONE
     Indication: ACUTE PROMYELOCYTIC LEUKAEMIA
     Dosage: UNK
     Route: 065
  3. IDARUBICIN [Concomitant]
     Active Substance: IDARUBICIN
     Indication: ACUTE PROMYELOCYTIC LEUKAEMIA
     Dosage: UNK
     Route: 065
  4. PREDNISOLONE. [Concomitant]
     Active Substance: PREDNISOLONE
     Indication: ACUTE PROMYELOCYTIC LEUKAEMIA
     Dosage: UNK
     Route: 065

REACTIONS (2)
  - Bronchopulmonary aspergillosis [Unknown]
  - Acute promyelocytic leukaemia differentiation syndrome [Fatal]
